FAERS Safety Report 12191671 (Version 6)
Quarter: 2016Q4

REPORT INFORMATION
  Report Type: Report from Study
  Country: FR (occurrence: FR)
  Receive Date: 20160318
  Receipt Date: 20161007
  Transmission Date: 20170207
  Serious: Yes (Hospitalization)
  Sender: FDA-Public Use
  Company Number: FR-ROCHE-1723463

PATIENT
  Age: 68 Year
  Sex: Male

DRUGS (46)
  1. OBINUTUZUMAB [Suspect]
     Active Substance: OBINUTUZUMAB
     Dosage: C1D2
     Route: 042
     Dates: start: 20151222, end: 20151222
  2. NEORECORMON [Concomitant]
     Active Substance: ERYTHROPOIETIN
     Dosage: INDICATION: SUPPLEMENT
     Route: 058
     Dates: start: 20151228
  3. RED BLOOD CELLS [Concomitant]
     Active Substance: HUMAN RED BLOOD CELL
     Dosage: AS SUPPLEMENT TRANSFUSION
     Route: 042
     Dates: start: 20160118, end: 20160119
  4. RED BLOOD CELLS [Concomitant]
     Active Substance: HUMAN RED BLOOD CELL
     Dosage: AS SUPPLEMENT TRANSFUSION?SINGLE DOSE
     Route: 042
     Dates: start: 20160226, end: 20160226
  5. RED BLOOD CELLS [Concomitant]
     Active Substance: HUMAN RED BLOOD CELL
     Dosage: AS SUPPLEMENT TRANSFUSION?SINGLE DOSE
     Route: 042
     Dates: start: 20160303, end: 20160303
  6. FILGRASTIM [Concomitant]
     Active Substance: FILGRASTIM
     Dosage: SUPPLEMENT
     Route: 058
     Dates: start: 20160209, end: 20160213
  7. OBINUTUZUMAB [Suspect]
     Active Substance: OBINUTUZUMAB
     Dosage: C1D8
     Route: 042
     Dates: start: 20151228, end: 20151228
  8. OBINUTUZUMAB [Suspect]
     Active Substance: OBINUTUZUMAB
     Dosage: C1D15?MOST RECENT DOSE PRIOR TO SAE: 02/MAR/2016
     Route: 042
     Dates: start: 20160104, end: 20160104
  9. ALPRAZOLAM. [Concomitant]
     Active Substance: ALPRAZOLAM
     Indication: EDENTULOUS
     Route: 048
     Dates: start: 20151123
  10. METHYLPREDNISOLONE. [Concomitant]
     Active Substance: METHYLPREDNISOLONE
     Indication: PROPHYLAXIS
     Route: 042
     Dates: start: 20151220, end: 20151220
  11. POLARAMINE [Concomitant]
     Active Substance: DEXCHLORPHENIRAMINE MALEATE
     Indication: PROPHYLAXIS
     Route: 048
     Dates: start: 20151221, end: 20151222
  12. RED BLOOD CELLS [Concomitant]
     Active Substance: HUMAN RED BLOOD CELL
     Dosage: AS SUPPLEMENT TRANSFUSION?SINGLE DOSE
     Route: 042
     Dates: start: 20160204, end: 20160204
  13. OBINUTUZUMAB [Suspect]
     Active Substance: OBINUTUZUMAB
     Indication: CHRONIC LYMPHOCYTIC LEUKAEMIA
     Dosage: C1D1
     Route: 042
     Dates: start: 20151221, end: 20151221
  14. LEDERFOLINE [Concomitant]
     Active Substance: LEUCOVORIN CALCIUM
     Dosage: SUPPLEMENT
     Route: 048
     Dates: start: 20151223, end: 20160411
  15. METHYLPREDNISOLONE. [Concomitant]
     Active Substance: METHYLPREDNISOLONE
     Indication: PREMEDICATION
     Route: 042
     Dates: start: 20160104, end: 20160104
  16. METHYLPREDNISOLONE. [Concomitant]
     Active Substance: METHYLPREDNISOLONE
     Route: 042
     Dates: start: 20151228, end: 20151228
  17. PARALYOC [Concomitant]
     Active Substance: ACETAMINOPHEN
     Route: 048
     Dates: start: 20151221, end: 20151222
  18. POLARAMINE [Concomitant]
     Active Substance: DEXCHLORPHENIRAMINE MALEATE
     Indication: PREMEDICATION
     Route: 048
     Dates: start: 20160104, end: 20160104
  19. RED BLOOD CELLS [Concomitant]
     Active Substance: HUMAN RED BLOOD CELL
     Dosage: AS SUPPLEMENT TRANSFUSION?SINGLE DOSE
     Route: 042
     Dates: start: 20160318, end: 20160318
  20. AMOXICILLINE [Concomitant]
     Active Substance: AMOXICILLIN
     Route: 048
     Dates: start: 201603, end: 201603
  21. BENDAMUSTINE [Suspect]
     Active Substance: BENDAMUSTINE
     Indication: CHRONIC LYMPHOCYTIC LEUKAEMIA
     Dosage: C1D1
     Route: 042
     Dates: start: 20151221, end: 20151221
  22. KARDEGIC [Concomitant]
     Active Substance: ASPIRIN LYSINE
     Indication: DEAFNESS
     Route: 048
     Dates: start: 20120118
  23. PARALYOC [Concomitant]
     Active Substance: ACETAMINOPHEN
     Indication: PREMEDICATION
     Route: 048
     Dates: start: 20160104, end: 20160104
  24. PARALYOC [Concomitant]
     Active Substance: ACETAMINOPHEN
     Indication: PROPHYLAXIS
     Route: 042
     Dates: start: 20151228, end: 20151228
  25. RED BLOOD CELLS [Concomitant]
     Active Substance: HUMAN RED BLOOD CELL
     Dosage: AS SUPPLEMENT TRANSFUSION?SINGLE DOSE
     Route: 042
     Dates: start: 20160212, end: 20160212
  26. ZYLORIC [Concomitant]
     Active Substance: ALLOPURINOL
     Route: 048
     Dates: start: 20160302, end: 20160304
  27. LASILIX [Concomitant]
     Active Substance: FUROSEMIDE
     Route: 048
     Dates: start: 20151124, end: 20151124
  28. RED BLOOD CELLS [Concomitant]
     Active Substance: HUMAN RED BLOOD CELL
     Dosage: AS SUPPLEMENT TRANSFUSION
     Route: 042
     Dates: start: 20151223, end: 20151223
  29. LASILIX [Concomitant]
     Active Substance: FUROSEMIDE
     Indication: EDENTULOUS
     Route: 048
     Dates: start: 20151216, end: 20151216
  30. RED BLOOD CELLS [Concomitant]
     Active Substance: HUMAN RED BLOOD CELL
     Dosage: AS SUPPLEMENT TRANSFUSION
     Route: 042
     Dates: start: 20151216, end: 20151216
  31. RED BLOOD CELLS [Concomitant]
     Active Substance: HUMAN RED BLOOD CELL
     Dosage: AS SUPPLEMENT TRANSFUSION
     Route: 042
     Dates: start: 20151123, end: 20151124
  32. RED BLOOD CELLS [Concomitant]
     Active Substance: HUMAN RED BLOOD CELL
     Dosage: AS SUPPLEMENT TRANSFUSION
     Route: 042
     Dates: start: 20151229, end: 20151229
  33. RED BLOOD CELLS [Concomitant]
     Active Substance: HUMAN RED BLOOD CELL
     Dosage: AS SUPPLEMENT TRANSFUSION?SINGLE DOSE
     Route: 042
     Dates: start: 20160306, end: 20160306
  34. ZELITREX [Concomitant]
     Active Substance: VALACYCLOVIR HYDROCHLORIDE
     Indication: PROPHYLAXIS
     Route: 048
     Dates: start: 20151223, end: 20160411
  35. ZOPHREN [Concomitant]
     Active Substance: ONDANSETRON
     Indication: PROPHYLAXIS
     Route: 048
     Dates: start: 20151221, end: 20151223
  36. KAYEXALATE [Concomitant]
     Active Substance: SODIUM POLYSTYRENE SULFONATE
     Dosage: SINGLE DOSE?SUPPLEMENT
     Route: 048
     Dates: start: 20160304, end: 20160304
  37. TAVANIC [Concomitant]
     Active Substance: LEVOFLOXACIN
     Route: 048
     Dates: start: 201603, end: 201603
  38. BENDAMUSTINE [Suspect]
     Active Substance: BENDAMUSTINE
     Dosage: C1D2?MOST RECENT DOSE PRIOR TO SAE: 03/MAR/2016
     Route: 042
     Dates: start: 20151222, end: 20151222
  39. BACTRIM [Concomitant]
     Active Substance: SULFAMETHOXAZOLE\TRIMETHOPRIM
     Indication: PROPHYLAXIS
     Route: 048
     Dates: start: 20151223, end: 20160411
  40. PLATELETS [Concomitant]
     Active Substance: HUMAN PLATELET, ALLOGENIC
     Dosage: SUPPLEMENT TRANSFUSION
     Route: 042
     Dates: start: 20160105, end: 20160105
  41. POLARAMINE [Concomitant]
     Active Substance: DEXCHLORPHENIRAMINE MALEATE
     Route: 042
     Dates: start: 20151228, end: 20151228
  42. RED BLOOD CELLS [Concomitant]
     Active Substance: HUMAN RED BLOOD CELL
     Dosage: 1 BAG ?AS SUPPLEMENT TRANSFUSION
     Route: 042
     Dates: start: 20160104, end: 20160105
  43. PRIMPERAN [Concomitant]
     Active Substance: METOCLOPRAMIDE HYDROCHLORIDE
     Indication: PROPHYLAXIS
     Dosage: SINGLE DOSE
     Route: 048
     Dates: start: 20160303, end: 20160303
  44. BACTRIM [Concomitant]
     Active Substance: SULFAMETHOXAZOLE\TRIMETHOPRIM
     Route: 065
     Dates: start: 20160304, end: 20160304
  45. METHYLPREDNISOLONE. [Concomitant]
     Active Substance: METHYLPREDNISOLONE
     Route: 042
     Dates: start: 20151221, end: 20151222
  46. PLATELETS [Concomitant]
     Active Substance: HUMAN PLATELET, ALLOGENIC
     Dosage: SUPPLEMENT TRANSFUSION
     Route: 042
     Dates: start: 20160118, end: 20160118

REACTIONS (3)
  - Acute kidney injury [Recovered/Resolved]
  - Hepatocellular injury [Recovered/Resolved]
  - Pyrexia [Recovered/Resolved]

NARRATIVE: CASE EVENT DATE: 20160303
